FAERS Safety Report 22100935 (Version 1)
Quarter: 2023Q1

REPORT INFORMATION
  Report Type: Spontaneous
  Country: FR (occurrence: FR)
  Receive Date: 20230316
  Receipt Date: 20230316
  Transmission Date: 20230417
  Serious: Yes (Other)
  Sender: FDA-Public Use
  Company Number: FR-AFSSAPS-CN2023000220

PATIENT
  Age: 65 Year
  Sex: Male

DRUGS (10)
  1. CILASTATIN SODIUM\IMIPENEM [Suspect]
     Active Substance: CILASTATIN SODIUM\IMIPENEM
     Indication: Septic shock
     Dosage: 1.5 GRAM, ONCE A DAY
     Route: 042
     Dates: start: 20190928, end: 20190930
  2. CILASTATIN SODIUM\IMIPENEM [Suspect]
     Active Substance: CILASTATIN SODIUM\IMIPENEM
     Dosage: 1.5 GRAM, ONCE A DAY
     Route: 042
     Dates: start: 20191007, end: 20191014
  3. CILASTATIN SODIUM\IMIPENEM [Suspect]
     Active Substance: CILASTATIN SODIUM\IMIPENEM
     Dosage: 1.5 GRAM, ONCE A DAY
     Route: 042
     Dates: start: 20191020, end: 20191026
  4. FLUCONAZOLE [Suspect]
     Active Substance: FLUCONAZOLE
     Indication: Fungal infection
     Dosage: 800 MILLIGRAM, ONCE A DAY(400 MG *2/JOUR)
     Route: 042
     Dates: start: 20191015, end: 20191021
  5. CASPOFUNGIN ACETATE [Suspect]
     Active Substance: CASPOFUNGIN ACETATE
     Indication: Fungal infection
     Dosage: 70 MILLIGRAM, ONCE A DAY(70 MG PAR JOUR PUIS 50 MG/JOUR)
     Route: 042
     Dates: start: 20190928, end: 20190930
  6. CASPOFUNGIN ACETATE [Suspect]
     Active Substance: CASPOFUNGIN ACETATE
     Dosage: 70 MILLIGRAM, ONCE A DAY(70 MG PAR JOUR PUIS 50 MG/JOUR)
     Route: 042
     Dates: start: 20191007, end: 20191015
  7. ZOVIRAX [Suspect]
     Active Substance: ACYCLOVIR
     Indication: Fungal infection
     Dosage: 800 MILLIGRAM, ONCE A DAY
     Route: 048
     Dates: start: 20191016, end: 20191019
  8. VANCOMYCIN [Suspect]
     Active Substance: VANCOMYCIN
     Indication: Septic shock
     Dosage: 2 GRAM, ONCE A DAY
     Route: 042
     Dates: start: 20190928, end: 20191013
  9. VANCOMYCIN [Suspect]
     Active Substance: VANCOMYCIN
     Dosage: 2 GRAM, ONCE A DAY
     Route: 042
     Dates: start: 20191020, end: 20191022
  10. ERYTHROMYCIN LACTOBIONATE [Suspect]
     Active Substance: ERYTHROMYCIN LACTOBIONATE
     Indication: Bacterial infection
     Dosage: 1 GRAM, ONCE A DAY(250 MG*4/JOUR)
     Route: 042
     Dates: start: 20191020, end: 20191021

REACTIONS (1)
  - Dermatitis exfoliative generalised [Not Recovered/Not Resolved]

NARRATIVE: CASE EVENT DATE: 20191220
